FAERS Safety Report 6679678-8 (Version None)
Quarter: 2010Q2

REPORT INFORMATION
  Report Type: 
  Country: None (occurrence: None)
  Receive Date: 20100413
  Receipt Date: 20100407
  Transmission Date: 20101027
  Serious: Yes (Hospitalization)
  Sender: FDA-Public Use
  Company Number: B0646910A

PATIENT
  Sex: Female

DRUGS (5)
  1. DILATREND [Suspect]
     Indication: DRUG USE FOR UNKNOWN INDICATION
     Dosage: 6.25MG PER DAY
     Route: 048
     Dates: start: 20100222, end: 20100302
  2. NORVASC [Concomitant]
  3. ASPIRIN [Concomitant]
  4. COTAREG [Concomitant]
  5. MEPRAL [Concomitant]

REACTIONS (1)
  - MONOPLEGIA [None]
